FAERS Safety Report 5023153-3 (Version None)
Quarter: 2006Q2

REPORT INFORMATION
  Report Type: 
  Country: None (occurrence: None)
  Receive Date: 20060605
  Receipt Date: 20060525
  Transmission Date: 20061013
  Serious: Yes (Death, Other)
  Sender: FDA-Public Use
  Company Number: 2006-05-0378

PATIENT
  Age: 59 Year
  Sex: Female

DRUGS (4)
  1. INTRON A [Suspect]
     Indication: HEPATITIS C
     Dosage: 6 MIU INTRAMUSCULAR
     Route: 030
     Dates: start: 20031120, end: 20040121
  2. REBETOL [Suspect]
     Indication: HEPATITIS C
     Dosage: 600 MG ORAL
     Route: 048
     Dates: start: 20031120, end: 20040121
  3. PEGASYS [Suspect]
     Indication: HEPATITIS C
     Dates: start: 20051201, end: 20060101
  4. ADVAFERON (INTERFERON ALFACON-1) [Suspect]
     Indication: HEPATITIS C
     Dates: start: 20040122, end: 20040617

REACTIONS (2)
  - ANAEMIA [None]
  - INTERSTITIAL LUNG DISEASE [None]
